FAERS Safety Report 22221400 (Version 1)
Quarter: 2023Q2

REPORT INFORMATION
  Report Type: Spontaneous
  Country: US (occurrence: US)
  Receive Date: 20230418
  Receipt Date: 20230418
  Transmission Date: 20230721
  Serious: Yes (Hospitalization, Other)
  Sender: FDA-Public Use
  Company Number: US-Vifor (International) Inc.-VIT-2023-02670

PATIENT
  Age: 76 Year
  Sex: Female
  Weight: 39.2 kg

DRUGS (1)
  1. MIRCERA [Suspect]
     Active Substance: METHOXY POLYETHYLENE GLYCOL-EPOETIN BETA
     Indication: Nephrogenic anaemia
     Dosage: 75 (3)
     Route: 040
     Dates: start: 20230317, end: 20230317

REACTIONS (6)
  - Drug hypersensitivity [Unknown]
  - Mental status changes [Unknown]
  - Dyspnoea [Unknown]
  - Hypotension [Unknown]
  - Unresponsive to stimuli [Recovered/Resolved]
  - Tachycardia [Unknown]

NARRATIVE: CASE EVENT DATE: 20230317
